FAERS Safety Report 15690353 (Version 1)
Quarter: 2018Q4

REPORT INFORMATION
  Report Type: Spontaneous
  Country: SE (occurrence: SE)
  Receive Date: 20181205
  Receipt Date: 20181205
  Transmission Date: 20190205
  Serious: Yes (Life-Threatening)
  Sender: FDA-Public Use
  Company Number: SE-TEVA-2018-SE-981987

PATIENT
  Age: 76 Year
  Sex: Male

DRUGS (1)
  1. METHOTREXATE. [Suspect]
     Active Substance: METHOTREXATE
     Indication: RHEUMATOID ARTHRITIS
     Route: 065
     Dates: start: 20050701, end: 20171214

REACTIONS (1)
  - Mantle cell lymphoma [Not Recovered/Not Resolved]

NARRATIVE: CASE EVENT DATE: 20180117
